FAERS Safety Report 18316935 (Version 4)
Quarter: 2020Q4

REPORT INFORMATION
  Report Type: Spontaneous
  Country: CA (occurrence: CA)
  Receive Date: 20200928
  Receipt Date: 20201110
  Transmission Date: 20210113
  Serious: Yes (Other)
  Sender: FDA-Public Use
  Company Number: CA-CELLTRION INC.-2020CA028055

PATIENT

DRUGS (2)
  1. XARELTO [Concomitant]
     Active Substance: RIVAROXABAN
     Dosage: 15 MG, 2X/DAY
     Route: 065
     Dates: start: 2020
  2. INFLECTRA [Suspect]
     Active Substance: INFLIXIMAB-DYYB
     Indication: CROHN^S DISEASE
     Dosage: 300 MG, 0, 2, 6 THEN UNKNOWN
     Route: 042
     Dates: start: 20200904, end: 20200904

REACTIONS (12)
  - Malnutrition [Unknown]
  - Pulse abnormal [Unknown]
  - Dysphonia [Unknown]
  - Obstruction [Unknown]
  - Pallor [Unknown]
  - Change of bowel habit [Unknown]
  - Blood pressure immeasurable [Unknown]
  - Asthenia [Unknown]
  - Infrequent bowel movements [Unknown]
  - Dysstasia [Unknown]
  - Skin lesion [Unknown]
  - Constipation [Unknown]

NARRATIVE: CASE EVENT DATE: 202009
